FAERS Safety Report 14244910 (Version 1)
Quarter: 2017Q4

REPORT INFORMATION
  Report Type: Not Available
  Country: US (occurrence: US)
  Receive Date: 20171201
  Receipt Date: 20171201
  Transmission Date: 20180321
  Serious: Yes (Hospitalization)
  Sender: FDA-Public Use
  Company Number: US-NEUROCRINE BIOSCIENCES INC.-2017NBI01243

PATIENT
  Age: 74 Year
  Sex: Female

DRUGS (7)
  1. LATUDA [Concomitant]
     Active Substance: LURASIDONE HYDROCHLORIDE
  2. INGREZZA [Suspect]
     Active Substance: VALBENAZINE
     Indication: DYSKINESIA
     Route: 048
     Dates: start: 20170622, end: 20170629
  3. CARVEDILOL. [Concomitant]
     Active Substance: CARVEDILOL
     Indication: HYPERTENSION
  4. LOSARTAN. [Concomitant]
     Active Substance: LOSARTAN
  5. WARFARIN [Concomitant]
     Active Substance: WARFARIN
  6. AMLODIPINE [Concomitant]
     Active Substance: AMLODIPINE BESYLATE
  7. INGREZZA [Suspect]
     Active Substance: VALBENAZINE
     Route: 048
     Dates: start: 20170630

REACTIONS (3)
  - Dyspnoea [Not Recovered/Not Resolved]
  - Intentional dose omission [None]
  - Aneurysm [Unknown]

NARRATIVE: CASE EVENT DATE: 20170622
